FAERS Safety Report 5531529-0 (Version None)
Quarter: 2007Q4

REPORT INFORMATION
  Report Type: 
  Country: None (occurrence: None)
  Receive Date: 20071128
  Receipt Date: 20071128
  Transmission Date: 20080405
  Serious: No
  Sender: FDA-Public Use
  Company Number: None

PATIENT
  Age: 39 Year
  Sex: Female
  Weight: 79.3795 kg

DRUGS (1)
  1. CHANTIX [Suspect]
     Indication: SMOKING CESSATION THERAPY
     Dosage: 0.5 MG TWICE DAILY PO : 1.0 MG ONCE DAILY PO
     Route: 048
     Dates: start: 20070202, end: 20070701

REACTIONS (10)
  - ANXIETY [None]
  - DEPRESSION [None]
  - FEELING ABNORMAL [None]
  - HEADACHE [None]
  - INSOMNIA [None]
  - IRRITABILITY [None]
  - PALPITATIONS [None]
  - SCREAMING [None]
  - SENSORY DISTURBANCE [None]
  - TOBACCO WITHDRAWAL SYMPTOMS [None]
